FAERS Safety Report 8315800-5 (Version None)
Quarter: 2012Q2

REPORT INFORMATION
  Report Type: 
  Country: None (occurrence: None)
  Receive Date: 20120427
  Receipt Date: 20120425
  Transmission Date: 20120825
  Serious: Yes (Other)
  Sender: FDA-Public Use
  Company Number: GR-AMGEN-GRCSP2012025921

PATIENT
  Age: 55 Year
  Sex: Female

DRUGS (1)
  1. PROLIA [Suspect]
     Indication: OSTEOPOROSIS
     Dosage: 60 MG, Q6MO
     Dates: start: 20120301

REACTIONS (4)
  - THYROID FUNCTION TEST ABNORMAL [None]
  - ENDOMETRIAL HYPERTROPHY [None]
  - CONSTIPATION [None]
  - BREAST SWELLING [None]
